FAERS Safety Report 7413024-7 (Version None)
Quarter: 2011Q2

REPORT INFORMATION
  Report Type: 
  Country: None (occurrence: None)
  Receive Date: 20110413
  Receipt Date: 20110403
  Transmission Date: 20111010
  Serious: Yes (Hospitalization)
  Sender: FDA-Public Use
  Company Number: US-JNJFOC-20110401961

PATIENT
  Age: 64 Year
  Sex: Female

DRUGS (3)
  1. EXTRA STRENGTH TYLENOL [Suspect]
     Route: 065
  2. PEPCID [Concomitant]
     Indication: PRODUCT USED FOR UNKNOWN INDICATION
  3. EXTRA STRENGTH TYLENOL [Suspect]
     Indication: ARTHRALGIA
     Route: 065

REACTIONS (6)
  - CHEST PAIN [None]
  - PRODUCT QUALITY ISSUE [None]
  - HEADACHE [None]
  - ASTHENIA [None]
  - DEHYDRATION [None]
  - ABDOMINAL PAIN UPPER [None]
